FAERS Safety Report 8650401 (Version 2)
Quarter: 2014Q1

REPORT INFORMATION
  Report Type: Spontaneous
  Country: US (occurrence: None)
  Receive Date: 20120323
  Receipt Date: 20130305
  Transmission Date: 20141002
  Serious: Yes (Hospitalization)
  Sender: FDA-Public Use
  Company Number: 163-21880-11082707

PATIENT
  Age: 83 Year
  Sex: Female

DRUGS (35)
  1. REVLIMID [Suspect]
     Indication: PLASMA CELL MYELOMA
     Route: 048
     Dates: start: 20101001, end: 2010
  2. IMMUNOGLOBULIN (IMMUNOGLOBULIN)(UNKNOWN) [Concomitant]
  3. DECADRON (DEXAMETHASONE) [Concomitant]
  4. PREDNISONE [Concomitant]
  5. NYSTATIN (NYSTATIN)(UNKNOWN) [Concomitant]
  6. K-DUR (POTASSIUM CHLORIDE)(UNKNOWN) [Concomitant]
  7. BACTRIM [Concomitant]
  8. TYLENOL (PARACETAMOL)(UNKNOWN) [Concomitant]
  9. CALMOSEPTINE (OTHER DERMATOLOGICAL PREPARATIONS)(UNKNOWN) [Concomitant]
  10. COLACE (DOCUSATE SODIUM)(UNKNOWN) [Concomitant]
  11. IMODIUM (LOPERAMIDE HYDROCHLORIDE)(UNKNOWN) [Concomitant]
  12. SENOKOT (SENNA FRUIT)(UNKNOWN) [Concomitant]
  13. ATIVAN [Concomitant]
  14. PRADAXA (DABIGATRAN ETEXILATE MESILATE)(UNKNOWN) [Concomitant]
  15. ACYCLOVIR (ACICLOVIR)(UNKNOWN) [Concomitant]
  16. DUONEB (COMBIVENT)(UNKNOWN) [Concomitant]
  17. COMBIVENT (COMBIVENT)(UNKNOWN) [Concomitant]
  18. FOSAMAX (ALENDRONATE SODIUM)(UNKNOWN) [Concomitant]
  19. AMLODIPINE [Concomitant]
  20. OS-CAL (OS-CAL)(TABLETS) [Concomitant]
  21. ARIXTRA (FONDAPARINUX SODIUM)(UNKNOWN) [Concomitant]
  22. LACTOBACILLUS (LACTOBACILLUS ACIDOPHILUS)(TABLETS) [Concomitant]
  23. METOPROLOL TARTRATE [Concomitant]
  24. ZOSYN (PIP/TAZO) [Concomitant]
  25. VANCOMYCIN [Concomitant]
  26. CEFTRIAXONE [Concomitant]
  27. NORVASC (AMLODIPINE BESILATE) [Concomitant]
  28. LOPRESSOR (METOPROLOL TARTRATE) [Concomitant]
  29. PROTONIX [Concomitant]
  30. AMBIEN (ZOLPIDEM TARTRATE) [Concomitant]
  31. PRO-AIR (PROCATEROL HYDROCHLORIDE) [Concomitant]
  32. TRAMADOL [Concomitant]
  33. CALCIUM 500 WITH VITAMIN D (CALCIUM D3 ^STADA^) [Concomitant]
  34. POTASSIUM CHLORIDE [Concomitant]
  35. NOVO LOG (INSULIN) [Concomitant]

REACTIONS (3)
  - Pneumonia [None]
  - Disease recurrence [None]
  - Pneumonia [None]
